FAERS Safety Report 10151978 (Version 3)
Quarter: 2014Q3

REPORT INFORMATION
  Report Type: Report from Study
  Country: BR (occurrence: BR)
  Receive Date: 20140505
  Receipt Date: 20140703
  Transmission Date: 20150326
  Serious: Yes (Other)
  Sender: FDA-Public Use
  Company Number: PHHY2014BR050736

PATIENT
  Sex: Male
  Weight: 130 kg

DRUGS (6)
  1. SANDOSTATIN LAR DEPOT [Suspect]
     Active Substance: OCTREOTIDE ACETATE
     Indication: ACROMEGALY
     Dosage: UNK UKN, EVERY 28 DAYS
     Route: 058
  2. HYDROCHLOROTHIAZIDE. [Suspect]
     Active Substance: HYDROCHLOROTHIAZIDE
     Indication: HYPERTENSION
     Dosage: 1 DF, DAILY
     Route: 048
  3. AMLODIPINE [Suspect]
     Active Substance: AMLODIPINE BESYLATE
     Indication: HYPERTENSION
     Dosage: 1 DF, DAILY
     Route: 048
  4. ARADOIS [Suspect]
     Active Substance: LOSARTAN POTASSIUM
     Indication: BLOOD PRESSURE
     Dosage: 2 DF, DAILY
     Route: 048
  5. PURAN [Suspect]
     Active Substance: LEVOTHYROXINE SODIUM
     Indication: THYROID DISORDER
     Dosage: 1 DF, DAILY
     Route: 048
  6. ABLOK [Suspect]
     Active Substance: ATENOLOL
     Indication: BLOOD PRESSURE
     Dosage: 1 DF, DAILLY

REACTIONS (10)
  - Cholelithiasis [Unknown]
  - Pain [Unknown]
  - Thyroid neoplasm [Unknown]
  - Incorrect route of drug administration [Unknown]
  - Fear of death [Not Recovered/Not Resolved]
  - Weight bearing difficulty [Not Recovered/Not Resolved]
  - Feeling jittery [Not Recovered/Not Resolved]
  - Blood pressure increased [Unknown]
  - Swelling [Recovering/Resolving]
  - Osteoarthritis [Not Recovered/Not Resolved]
